FAERS Safety Report 7391059-0 (Version None)
Quarter: 2011Q2

REPORT INFORMATION
  Report Type: 
  Country: None (occurrence: None)
  Receive Date: 20110404
  Receipt Date: 20110323
  Transmission Date: 20111010
  Serious: Yes (Other)
  Sender: FDA-Public Use
  Company Number: US-JNJFOC-20110310938

PATIENT
  Age: 36 Year
  Sex: Female

DRUGS (2)
  1. TYLENOL (CAPLET) [Suspect]
     Indication: DYSMENORRHOEA
     Dosage: 650 MG EVERY 4-6 HOURS AS NEEDED
     Route: 048
  2. TYLENOL (CAPLET) [Suspect]
     Route: 048

REACTIONS (3)
  - ABORTION SPONTANEOUS [None]
  - PRODUCT QUALITY ISSUE [None]
  - DRUG EXPOSURE DURING PREGNANCY [None]
